FAERS Safety Report 13635562 (Version 1)
Quarter: 2017Q2

REPORT INFORMATION
  Report Type: Spontaneous
  Country: US (occurrence: US)
  Receive Date: 20170531
  Receipt Date: 20170531
  Transmission Date: 20170830
  Serious: No
  Sender: FDA-Public Use
  Company Number: US-ASTELLAS-1726571

PATIENT
  Sex: Female

DRUGS (5)
  1. TARCEVA [Suspect]
     Active Substance: ERLOTINIB HYDROCHLORIDE
     Indication: LUNG NEOPLASM MALIGNANT
     Route: 048
     Dates: start: 20160219
  2. METHADONE [Concomitant]
     Active Substance: METHADONE HYDROCHLORIDE
     Indication: PAIN
     Route: 048
  3. HYDROMORPHONE [Concomitant]
     Active Substance: HYDROMORPHONE
     Indication: PAIN
     Dosage: AS NEEDED
     Route: 048
  4. ZOLOFT [Concomitant]
     Active Substance: SERTRALINE HYDROCHLORIDE
     Indication: DEPRESSION
     Route: 048
  5. COLACE [Concomitant]
     Active Substance: DOCUSATE SODIUM
     Indication: CONSTIPATION
     Route: 048

REACTIONS (13)
  - Hot flush [Unknown]
  - Productive cough [Unknown]
  - Pain [Unknown]
  - Rash erythematous [Unknown]
  - Onychoclasis [Unknown]
  - Rash [Unknown]
  - Erythema [Unknown]
  - Alopecia [Unknown]
  - Nausea [Unknown]
  - Myalgia [Unknown]
  - Hair texture abnormal [Unknown]
  - Hyperhidrosis [Unknown]
  - Onychomadesis [Unknown]
